FAERS Safety Report 15704030 (Version 3)
Quarter: 2019Q2

REPORT INFORMATION
  Report Type: Report from Study
  Country: US (occurrence: US)
  Receive Date: 20181210
  Receipt Date: 20190411
  Transmission Date: 20190711
  Serious: Yes (Hospitalization)
  Sender: FDA-Public Use
  Company Number: US-ROCHE-2224442

PATIENT
  Age: 68 Year
  Sex: Male
  Weight: 96.8 kg

DRUGS (10)
  1. GLIMEPIRIDE. [Concomitant]
     Active Substance: GLIMEPIRIDE
  2. CABOZANTINIB [Suspect]
     Active Substance: CABOZANTINIB
     Indication: NEOPLASM
     Dosage: ON 23/NOV/2018, THE PATIENT RECEIVED THE MOST RECENT DOSE OF CABOZANTINIB
     Route: 048
     Dates: start: 20180723
  3. FEBUXOSTAT. [Concomitant]
     Active Substance: FEBUXOSTAT
  4. BACITRACIN. [Concomitant]
     Active Substance: BACITRACIN
  5. ATEZOLIZUMAB. [Suspect]
     Active Substance: ATEZOLIZUMAB
     Indication: NEOPLASM
     Dosage: ON 05 NOV 2018, THE PATIENT RECEIVED THE MOST RECENT DOSE OF ATEZOLIZUMAB PRIOR TO EVENT ONSET.
     Route: 042
     Dates: start: 20180723
  6. SIMVASTATIN. [Concomitant]
     Active Substance: SIMVASTATIN
  7. IMODIUM [Concomitant]
     Active Substance: LOPERAMIDE HYDROCHLORIDE
  8. SERTRALINE [Concomitant]
     Active Substance: SERTRALINE HYDROCHLORIDE
  9. DILTIAZEM. [Concomitant]
     Active Substance: DILTIAZEM
  10. CLONAZEPAM. [Concomitant]
     Active Substance: CLONAZEPAM

REACTIONS (2)
  - Diarrhoea [Recovered/Resolved]
  - Acute kidney injury [Recovered/Resolved]
